FAERS Safety Report 15601193 (Version 1)
Quarter: 2018Q4

REPORT INFORMATION
  Report Type: Spontaneous
  Country: US (occurrence: US)
  Receive Date: 20181109
  Receipt Date: 20181109
  Transmission Date: 20190205
  Serious: No
  Sender: FDA-Public Use
  Company Number: US-PFIZER INC-2018449510

PATIENT
  Age: 74 Year
  Sex: Male

DRUGS (4)
  1. SIMVASTATIN. [Concomitant]
     Active Substance: SIMVASTATIN
     Indication: BLOOD CHOLESTEROL INCREASED
     Dosage: 40 MG, 1X/DAY (40 MG, ORALLY, IN EVENING 1 PILL A DAY   )
     Route: 048
     Dates: start: 20170301
  2. LYRICA [Suspect]
     Active Substance: PREGABALIN
     Indication: MOUTH INJURY
     Dosage: 50 MG, TWICE A DAY
     Route: 048
  3. LYRICA [Suspect]
     Active Substance: PREGABALIN
     Indication: PAIN
  4. TAMSULOSIN [Concomitant]
     Active Substance: TAMSULOSIN
     Indication: BLADDER DISORDER
     Dosage: 0.4 MG, 1X/DAY (0.4 MG, CAPSULE, ORALLY, ONCE IN THE MORNING   )
     Route: 048

REACTIONS (2)
  - Dysphagia [Unknown]
  - Intentional product misuse [Unknown]
